FAERS Safety Report 5802626-7 (Version None)
Quarter: 2008Q3

REPORT INFORMATION
  Report Type: 
  Country: None (occurrence: None)
  Receive Date: 20080708
  Receipt Date: 20080625
  Transmission Date: 20090109
  Serious: Yes (Other)
  Sender: FDA-Public Use
  Company Number: US-BAYER-200811738NA

PATIENT

DRUGS (5)
  1. CAMPATH [Suspect]
     Indication: CHRONIC LYMPHOCYTIC LEUKAEMIA
     Route: 058
     Dates: start: 20060501, end: 20060602
  2. FLUDARABINE PHOSPHATE [Suspect]
     Indication: CHRONIC LYMPHOCYTIC LEUKAEMIA
     Dosage: AS USED: 25 MG/M2
     Route: 042
  3. RITUXIMAB [Suspect]
     Indication: CHRONIC LYMPHOCYTIC LEUKAEMIA
     Dosage: AS USED: 50 MG/M2
     Route: 042
  4. RITUXIMAB [Suspect]
     Dosage: AS USED: 325 MG/M2
     Route: 042
  5. RITUXIMAB [Suspect]
     Dosage: AS USED: 375 MG/M2
     Route: 042

REACTIONS (10)
  - DIZZINESS [None]
  - HAEMOGLOBIN DECREASED [None]
  - HAEMOLYSIS [None]
  - HYPOKALAEMIA [None]
  - HYPONATRAEMIA [None]
  - HYPOPHOSPHATAEMIA [None]
  - LYMPHOPENIA [None]
  - OPPORTUNISTIC INFECTION [None]
  - PLEURAL EFFUSION [None]
  - PNEUMONIA [None]
